FAERS Safety Report 24433180 (Version 9)
Quarter: 2025Q4

REPORT INFORMATION
  Report Type: Report from Study
  Country: CN (occurrence: CN)
  Receive Date: 20241014
  Receipt Date: 20251210
  Transmission Date: 20260118
  Serious: Yes (Other)
  Sender: NOVARTIS
  Company Number: CN-002147023-NVSC2024CN182868

PATIENT
  Age: 59 Year
  Sex: Female

DRUGS (51)
  1. MEKINIST [Suspect]
     Active Substance: TRAMETINIB DIMETHYL SULFOXIDE
     Indication: BRAF V600E mutation positive
     Dosage: 2 (TABLET)
     Route: 048
     Dates: start: 20240815, end: 20240817
  2. MEKINIST [Suspect]
     Active Substance: TRAMETINIB DIMETHYL SULFOXIDE
     Indication: Malignant melanoma
     Dosage: 0 TABLET
     Route: 048
     Dates: start: 20240818, end: 20240819
  3. MEKINIST [Suspect]
     Active Substance: TRAMETINIB DIMETHYL SULFOXIDE
     Dosage: 2 (TABLET)
     Route: 048
     Dates: start: 20240820, end: 20240820
  4. MEKINIST [Suspect]
     Active Substance: TRAMETINIB DIMETHYL SULFOXIDE
     Dosage: 0 TABLET
     Route: 048
     Dates: start: 20240821, end: 20240822
  5. MEKINIST [Suspect]
     Active Substance: TRAMETINIB DIMETHYL SULFOXIDE
     Dosage: 2 (TABLET)
     Route: 048
     Dates: start: 20240823, end: 20240926
  6. MEKINIST [Suspect]
     Active Substance: TRAMETINIB DIMETHYL SULFOXIDE
     Dosage: 0 TABLET
     Route: 048
     Dates: start: 20240927, end: 20240930
  7. MEKINIST [Suspect]
     Active Substance: TRAMETINIB DIMETHYL SULFOXIDE
     Dosage: 2 (TABLET)
     Route: 048
     Dates: start: 20241001, end: 20241016
  8. MEKINIST [Suspect]
     Active Substance: TRAMETINIB DIMETHYL SULFOXIDE
     Dosage: 0 TABLET
     Route: 048
     Dates: start: 20241017, end: 20241019
  9. MEKINIST [Suspect]
     Active Substance: TRAMETINIB DIMETHYL SULFOXIDE
     Dosage: 2 (TABLET)
     Route: 048
     Dates: start: 20241020, end: 20250213
  10. MEKINIST [Suspect]
     Active Substance: TRAMETINIB DIMETHYL SULFOXIDE
     Dosage: 0 TABLET
     Route: 048
     Dates: start: 20250214, end: 20250217
  11. MEKINIST [Suspect]
     Active Substance: TRAMETINIB DIMETHYL SULFOXIDE
     Dosage: 2 TABLET
     Route: 048
     Dates: start: 20250218, end: 20250427
  12. MEKINIST [Suspect]
     Active Substance: TRAMETINIB DIMETHYL SULFOXIDE
     Dosage: 0 TABLET
     Route: 048
     Dates: start: 20250428, end: 20250429
  13. MEKINIST [Suspect]
     Active Substance: TRAMETINIB DIMETHYL SULFOXIDE
     Dosage: 2 TABLET
     Route: 048
     Dates: start: 20250430, end: 20250828
  14. MEKINIST [Suspect]
     Active Substance: TRAMETINIB DIMETHYL SULFOXIDE
     Dosage: 0 TABLET
     Route: 048
     Dates: start: 20250829, end: 20250829
  15. MEKINIST [Suspect]
     Active Substance: TRAMETINIB DIMETHYL SULFOXIDE
     Dosage: 2 TABLET
     Route: 048
     Dates: start: 20250830, end: 20250905
  16. MEKINIST [Suspect]
     Active Substance: TRAMETINIB DIMETHYL SULFOXIDE
     Dosage: 2 TABLET
     Route: 048
     Dates: start: 20250906, end: 20250912
  17. TAFINLAR [Suspect]
     Active Substance: DABRAFENIB MESYLATE
     Indication: BRAF V600E mutation positive
     Dosage: 150 (CAPSULE)
     Route: 048
     Dates: start: 20240815, end: 20240815
  18. TAFINLAR [Suspect]
     Active Substance: DABRAFENIB MESYLATE
     Indication: Malignant melanoma
     Dosage: 150 (CAPSULE)
     Route: 048
     Dates: start: 20240816, end: 20240816
  19. TAFINLAR [Suspect]
     Active Substance: DABRAFENIB MESYLATE
     Dosage: 150 (CAPSULE)
     Route: 048
     Dates: start: 20240817, end: 20240817
  20. TAFINLAR [Suspect]
     Active Substance: DABRAFENIB MESYLATE
     Dosage: UNK (0 CAPSULE)
     Route: 048
     Dates: start: 20240818, end: 20240819
  21. TAFINLAR [Suspect]
     Active Substance: DABRAFENIB MESYLATE
     Dosage: 150 (CAPSULE)
     Route: 048
     Dates: start: 20240820, end: 20240820
  22. TAFINLAR [Suspect]
     Active Substance: DABRAFENIB MESYLATE
     Dosage: UNK (0 CAPSULE)
     Route: 048
     Dates: start: 20240821, end: 20240822
  23. TAFINLAR [Suspect]
     Active Substance: DABRAFENIB MESYLATE
     Dosage: 150 (CAPSULE)
     Route: 048
     Dates: start: 20240823, end: 20240926
  24. TAFINLAR [Suspect]
     Active Substance: DABRAFENIB MESYLATE
     Dosage: UNK (0 CAPSULE)
     Route: 048
     Dates: start: 20240927, end: 20240930
  25. TAFINLAR [Suspect]
     Active Substance: DABRAFENIB MESYLATE
     Dosage: 150 (CAPSULE)
     Route: 048
     Dates: start: 20241001, end: 20241001
  26. TAFINLAR [Suspect]
     Active Substance: DABRAFENIB MESYLATE
     Dosage: 150 (CAPSULE)
     Route: 048
     Dates: start: 20241002, end: 20241015
  27. TAFINLAR [Suspect]
     Active Substance: DABRAFENIB MESYLATE
     Dosage: 150 (CAPSULE)
     Route: 048
     Dates: start: 20241016, end: 20241016
  28. TAFINLAR [Suspect]
     Active Substance: DABRAFENIB MESYLATE
     Dosage: UNK (0 CAPSULE)
     Route: 048
     Dates: start: 20241017, end: 20241019
  29. TAFINLAR [Suspect]
     Active Substance: DABRAFENIB MESYLATE
     Dosage: 75 (CAPSULE)
     Route: 048
     Dates: start: 20241020, end: 20241027
  30. TAFINLAR [Suspect]
     Active Substance: DABRAFENIB MESYLATE
     Dosage: 75 (CAPSULE)
     Route: 048
     Dates: start: 20241028, end: 20241105
  31. TAFINLAR [Suspect]
     Active Substance: DABRAFENIB MESYLATE
     Dosage: 150 (CAPSULE)
     Route: 048
     Dates: start: 20241028, end: 20241105
  32. TAFINLAR [Suspect]
     Active Substance: DABRAFENIB MESYLATE
     Dosage: 150 (CAPSULE)
     Route: 048
     Dates: start: 20241106, end: 20250213
  33. TAFINLAR [Suspect]
     Active Substance: DABRAFENIB MESYLATE
     Dosage: 0 CAPSULE
     Route: 048
     Dates: start: 20250214, end: 20250214
  34. TAFINLAR [Suspect]
     Active Substance: DABRAFENIB MESYLATE
     Dosage: 150 (CAPSULE)
     Route: 048
     Dates: start: 20250214, end: 20250214
  35. TAFINLAR [Suspect]
     Active Substance: DABRAFENIB MESYLATE
     Dosage: 0 CAPSULE
     Route: 048
     Dates: start: 20250215, end: 20250217
  36. TAFINLAR [Suspect]
     Active Substance: DABRAFENIB MESYLATE
     Dosage: 150 (CAPSULE)
     Route: 048
     Dates: start: 20250218, end: 20250218
  37. TAFINLAR [Suspect]
     Active Substance: DABRAFENIB MESYLATE
     Dosage: 0 CAPSULE
     Route: 048
     Dates: start: 20250218, end: 20250218
  38. TAFINLAR [Suspect]
     Active Substance: DABRAFENIB MESYLATE
     Dosage: 150 (CAPSULE)
     Route: 048
     Dates: start: 20250219, end: 20250427
  39. TAFINLAR [Suspect]
     Active Substance: DABRAFENIB MESYLATE
     Dosage: 0 CAPSULE
     Route: 048
     Dates: start: 20250428, end: 20250429
  40. TAFINLAR [Suspect]
     Active Substance: DABRAFENIB MESYLATE
     Dosage: 150 (CAPSULE)
     Route: 048
     Dates: start: 20250430, end: 20250828
  41. TAFINLAR [Suspect]
     Active Substance: DABRAFENIB MESYLATE
     Dosage: 150 (CAPSULE)
     Route: 048
     Dates: start: 20250829, end: 20250829
  42. TAFINLAR [Suspect]
     Active Substance: DABRAFENIB MESYLATE
     Dosage: 150 (CAPSULE)
     Route: 048
     Dates: start: 20250830, end: 20250905
  43. TAFINLAR [Suspect]
     Active Substance: DABRAFENIB MESYLATE
     Dosage: 75 (CAPSULE)
     Route: 048
     Dates: start: 20250906, end: 20250912
  44. TAFINLAR [Suspect]
     Active Substance: DABRAFENIB MESYLATE
     Dosage: 150 (CAPSULE)
     Route: 048
     Dates: start: 20250906, end: 20250912
  45. METHYLCOBALAMIN [Concomitant]
     Active Substance: METHYLCOBALAMIN
     Indication: Anxiety
     Dosage: UNK
     Route: 048
     Dates: start: 20240809, end: 20240831
  46. MAGNESIUM ISOGLYCYRRHIZINATE [Concomitant]
     Active Substance: MAGNESIUM ISOGLYCYRRHIZINATE
     Indication: Ill-defined disorder
     Dosage: UNK
     Route: 042
     Dates: start: 20240816, end: 20240819
  47. ILAPRAZOLE [Concomitant]
     Active Substance: ILAPRAZOLE
     Indication: Ill-defined disorder
     Dosage: UNK
     Route: 042
     Dates: start: 20240816, end: 20240821
  48. SODIUM THIOSULFATE [Concomitant]
     Active Substance: SODIUM THIOSULFATE
     Indication: Ill-defined disorder
     Dosage: UNK
     Route: 042
     Dates: start: 20240816, end: 20240819
  49. DEXTROSE\SODIUM CHLORIDE [Concomitant]
     Active Substance: DEXTROSE\SODIUM CHLORIDE
     Indication: Vehicle solution use
     Dosage: UNK
     Route: 042
     Dates: start: 20240818, end: 20240818
  50. DEXTROSE\SODIUM CHLORIDE [Concomitant]
     Active Substance: DEXTROSE\SODIUM CHLORIDE
     Dosage: UNK
     Route: 042
     Dates: start: 20240820, end: 20240821
  51. ESTAZOLAM [Concomitant]
     Active Substance: ESTAZOLAM
     Indication: Insomnia
     Dosage: UNK
     Route: 048
     Dates: start: 20240820, end: 20240910

REACTIONS (19)
  - Panniculitis [Recovered/Resolved]
  - Panniculitis [Not Recovered/Not Resolved]
  - Constipation [Recovered/Resolved]
  - Myalgia [Recovered/Resolved]
  - Nausea [Recovered/Resolved]
  - Pyrexia [Recovered/Resolved]
  - Pyrexia [Recovered/Resolved]
  - Pyrexia [Recovered/Resolved]
  - Pyrexia [Recovered/Resolved]
  - Malaise [Recovered/Resolved]
  - Myalgia [Not Recovered/Not Resolved]
  - Pyrexia [Recovered/Resolved]
  - Pyrexia [Recovered/Resolved]
  - Abdominal pain lower [Not Recovered/Not Resolved]
  - Hypotension [Recovered/Resolved]
  - Fatigue [Recovered/Resolved]
  - Pyrexia [Recovered/Resolved]
  - Asthenia [Recovered/Resolved]
  - Dyspnoea [Recovered/Resolved]

NARRATIVE: CASE EVENT DATE: 20240817
